FAERS Safety Report 16332738 (Version 1)
Quarter: 2019Q2

REPORT INFORMATION
  Report Type: Spontaneous
  Country: US (occurrence: US)
  Receive Date: 20190520
  Receipt Date: 20190520
  Transmission Date: 20190711
  Serious: No
  Sender: FDA-Public Use
  Company Number: US-PFIZER INC-2019212857

PATIENT
  Age: 70 Year
  Sex: Female
  Weight: 100.23 kg

DRUGS (4)
  1. LYRICA [Suspect]
     Active Substance: PREGABALIN
     Dosage: 25 MG, UNK
     Dates: end: 201904
  2. LYRICA [Suspect]
     Active Substance: PREGABALIN
     Dosage: 100 MG, UNK
  3. LYRICA [Suspect]
     Active Substance: PREGABALIN
     Dosage: 50 MG, UNK
  4. LYRICA [Suspect]
     Active Substance: PREGABALIN
     Indication: POST HERPETIC NEURALGIA
     Dosage: 150 MG, 2X/DAY
     Dates: start: 201901

REACTIONS (1)
  - Weight increased [Unknown]

NARRATIVE: CASE EVENT DATE: 201901
